FAERS Safety Report 21057657 (Version 6)
Quarter: 2023Q1

REPORT INFORMATION
  Report Type: Report from Study
  Country: CA (occurrence: CA)
  Receive Date: 20220708
  Receipt Date: 20230104
  Transmission Date: 20230417
  Serious: Yes (Hospitalization, Other)
  Sender: FDA-Public Use
  Company Number: CA-JNJFOC-20220707813

PATIENT
  Age: 53 Year
  Sex: Female

DRUGS (3)
  1. STELARA [Suspect]
     Active Substance: USTEKINUMAB
     Indication: Crohn^s disease
     Route: 058
     Dates: start: 20200821
  2. STELARA [Suspect]
     Active Substance: USTEKINUMAB
  3. PFIZER-BIONTECH COVID-19 VACCINE [Concomitant]
     Active Substance: TOZINAMERAN
     Indication: COVID-19 prophylaxis
     Route: 065

REACTIONS (13)
  - Postoperative wound infection [Recovering/Resolving]
  - Faecal vomiting [Unknown]
  - Limb mass [Recovered/Resolved]
  - Choking [Not Recovered/Not Resolved]
  - Crohn^s disease [Unknown]
  - Lymphadenopathy [Unknown]
  - Gastric disorder [Unknown]
  - Scab [Unknown]
  - Hypersomnia [Not Recovered/Not Resolved]
  - Cold sweat [Not Recovered/Not Resolved]
  - Cough [Not Recovered/Not Resolved]
  - Pyrexia [Not Recovered/Not Resolved]
  - Myalgia [Not Recovered/Not Resolved]

NARRATIVE: CASE EVENT DATE: 20220601
